FAERS Safety Report 5941126-0 (Version None)
Quarter: 2008Q4

REPORT INFORMATION
  Report Type: 
  Country: None (occurrence: None)
  Receive Date: 20081104
  Receipt Date: 20081024
  Transmission Date: 20090506
  Serious: Yes (Other)
  Sender: FDA-Public Use
  Company Number: US-BAXTER-2008BH011434

PATIENT
  Sex: Male
  Weight: 12 kg

DRUGS (2)
  1. MIDAZOLAM HYDROCHLORIDE [Suspect]
     Indication: SEDATION
     Route: 048
     Dates: start: 20080813, end: 20080813
  2. MIDAZOLAM HYDROCHLORIDE [Suspect]
     Indication: OFF LABEL USE
     Route: 048
     Dates: start: 20080813, end: 20080813

REACTIONS (2)
  - DRUG EFFECT DELAYED [None]
  - DRUG INEFFECTIVE [None]
